FAERS Safety Report 4266774-8 (Version None)
Quarter: 2004Q1

REPORT INFORMATION
  Report Type: 
  Country: None (occurrence: None)
  Receive Date: 20040108
  Receipt Date: 20021028
  Transmission Date: 20041129
  Serious: No
  Sender: FDA-Public Use
  Company Number: US-BRISTOL-MYERS SQUIBB COMPANY-12099925

PATIENT
  Age: 44 Year
  Sex: Female

DRUGS (10)
  1. CARDIOLITE [Suspect]
     Dosage: ROUTE: ^INJECTION^  FIRST DOSE: 9.4 MCI  SECOND DOSE: 35.8 MCI
     Route: 042
     Dates: start: 20021025, end: 20021025
  2. ASPIRIN [Concomitant]
  3. PLAVIX [Concomitant]
  4. PAXIL [Concomitant]
  5. PREVACID [Concomitant]
  6. NITROGLYCERIN [Concomitant]
  7. FOLIC ACID [Concomitant]
  8. MULTI-VITAMINS [Concomitant]
  9. VITAMIN B6 [Concomitant]
  10. DOCUSATE SODIUM [Concomitant]

REACTIONS (8)
  - ASTHENIA [None]
  - CHEST PAIN [None]
  - CHILLS [None]
  - FEELING ABNORMAL [None]
  - FEELING COLD [None]
  - FEELING HOT [None]
  - NAUSEA [None]
  - TREMOR [None]
